FAERS Safety Report 6137341-6 (Version None)
Quarter: 2009Q1

REPORT INFORMATION
  Report Type: 
  Country: None (occurrence: None)
  Receive Date: 20090330
  Receipt Date: 20090325
  Transmission Date: 20090719
  Serious: No
  Sender: FDA-Public Use
  Company Number: US-B.I. PHARMACEUTICALS,INC./RIDGEFIELD-2009-BP-01681BP

PATIENT
  Sex: Female
  Weight: 106 kg

DRUGS (4)
  1. MIRAPEX [Suspect]
     Indication: RESTLESS LEGS SYNDROME
     Dosage: 1MG
  2. PREMARIN [Concomitant]
  3. VITAMIN E [Concomitant]
  4. LEXAPRO [Concomitant]
     Dosage: 10MG
     Dates: start: 20090225

REACTIONS (3)
  - DRUG EFFECT DECREASED [None]
  - PARAESTHESIA [None]
  - RESTLESS LEGS SYNDROME [None]
